FAERS Safety Report 11050015 (Version 6)
Quarter: 2015Q3

REPORT INFORMATION
  Report Type: Report from Study
  Country: PL (occurrence: PL)
  Receive Date: 20150420
  Receipt Date: 20150722
  Transmission Date: 20151125
  Serious: Yes (Hospitalization)
  Sender: FDA-Public Use
  Company Number: PL-ROCHE-1563093

PATIENT
  Age: 58 Year
  Sex: Female
  Weight: 79 kg

DRUGS (10)
  1. CISPLATIN. [Suspect]
     Active Substance: CISPLATIN
     Indication: HER-2 POSITIVE GASTRIC CANCER
     Dosage: RECEIVED MOST RECENT DOSE ON 01/APR/2015
     Route: 042
     Dates: start: 20150401
  2. CLEMASTINE [Concomitant]
     Active Substance: CLEMASTINE
     Dosage: TRASTUZUMAB PROPHYLAXIS
     Route: 042
     Dates: start: 20150331, end: 20150331
  3. APREPITANT. [Concomitant]
     Active Substance: APREPITANT
     Indication: PROPHYLAXIS OF NAUSEA AND VOMITING
     Route: 048
     Dates: start: 20150331, end: 20150331
  4. ONDANSETRON [Concomitant]
     Active Substance: ONDANSETRON
     Indication: PROPHYLAXIS OF NAUSEA AND VOMITING
     Route: 042
     Dates: start: 20150331, end: 20150401
  5. RANITIDINE [Concomitant]
     Active Substance: RANITIDINE\RANITIDINE HYDROCHLORIDE
     Route: 042
     Dates: start: 20150331, end: 20150331
  6. DEXAMETHASONE. [Concomitant]
     Active Substance: DEXAMETHASONE
     Indication: PROPHYLAXIS OF NAUSEA AND VOMITING
     Route: 042
     Dates: start: 20150331, end: 20150401
  7. APREPITANT. [Concomitant]
     Active Substance: APREPITANT
     Route: 048
     Dates: start: 20150401, end: 20150402
  8. BLINDED PERTUZUMAB [Suspect]
     Active Substance: PERTUZUMAB
     Indication: HER-2 POSITIVE GASTRIC CANCER
     Dosage: ON 31/MAR/2015, MOST RECENT DOSE PRIOR TO THE EVENT WAS TAKEN.
     Route: 042
     Dates: start: 20150331
  9. TRASTUZUMAB [Suspect]
     Active Substance: TRASTUZUMAB
     Indication: HER-2 POSITIVE GASTRIC CANCER
     Dosage: LOADING DOSE: 8 MG/KG?ON 31/MAR/2015, MOST RECENT DOSE PRIOR TO THE EVENT WAS TAKEN.
     Route: 042
     Dates: start: 20150331
  10. CAPECITABINE. [Suspect]
     Active Substance: CAPECITABINE
     Indication: HER-2 POSITIVE GASTRIC CANCER
     Dosage: MOST RECENT DOSE RECEIVED ON 09/APR/2015, DOSE REDUCED
     Route: 048
     Dates: start: 20150331

REACTIONS (2)
  - Mucosal inflammation [Recovered/Resolved]
  - Decreased appetite [Recovered/Resolved]

NARRATIVE: CASE EVENT DATE: 20150405
